FAERS Safety Report 17449579 (Version 2)
Quarter: 2020Q1

REPORT INFORMATION
  Report Type: Report from Study
  Country: None (occurrence: DE)
  Receive Date: 20200224
  Receipt Date: 20200306
  Transmission Date: 20200409
  Serious: Yes (Hospitalization, Disabling, Other)
  Sender: FDA-Public Use
  Company Number: DE-ABBVIE-20K-062-3289115-00

PATIENT
  Age: 76 Year
  Sex: Female
  Weight: 69 kg

DRUGS (17)
  1. RAMIPRIL. [Concomitant]
     Active Substance: RAMIPRIL
     Indication: HYPERTENSION
     Route: 048
  2. ACETYLSALICYLIC ACID [Concomitant]
     Active Substance: ASPIRIN
     Indication: PRODUCT USED FOR UNKNOWN INDICATION
  3. VENETOCLAX. [Suspect]
     Active Substance: VENETOCLAX
     Indication: CHRONIC LYMPHOCYTIC LEUKAEMIA
     Route: 048
     Dates: start: 20180529, end: 20180604
  4. VENETOCLAX. [Suspect]
     Active Substance: VENETOCLAX
     Route: 048
     Dates: start: 20180626, end: 20180702
  5. PREDNISOLON [Concomitant]
     Active Substance: PREDNISOLONE
     Indication: PRODUCT USED FOR UNKNOWN INDICATION
  6. MESALAMINE. [Concomitant]
     Active Substance: MESALAMINE
     Indication: PRODUCT USED FOR UNKNOWN INDICATION
     Dosage: FREQUENCY TEXT-0-0-1
  7. CLEXANE [Concomitant]
     Active Substance: ENOXAPARIN SODIUM
     Indication: PRODUCT USED FOR UNKNOWN INDICATION
     Dosage: ML, FREQUENCY TEXT-0-0-0-1
     Route: 058
  8. METOPROLOL. [Concomitant]
     Active Substance: METOPROLOL
     Indication: HYPERTENSION
     Dosage: FREQUENCY TEXT--0-0
  9. OMEPRAZOL [Concomitant]
     Active Substance: OMEPRAZOLE
     Indication: PRODUCT USED FOR UNKNOWN INDICATION
     Dosage: FREQUENCY TEXT-1-0-0
  10. VENETOCLAX. [Suspect]
     Active Substance: VENETOCLAX
     Route: 048
     Dates: end: 20200206
  11. CLOPIDOGREL [Concomitant]
     Active Substance: CLOPIDOGREL BISULFATE
     Indication: PRODUCT USED FOR UNKNOWN INDICATION
     Dates: start: 20200206
  12. VENETOCLAX. [Suspect]
     Active Substance: VENETOCLAX
     Route: 048
     Dates: start: 20180605, end: 20180611
  13. VENETOCLAX. [Suspect]
     Active Substance: VENETOCLAX
     Route: 048
     Dates: start: 20180619, end: 20180625
  14. TORASEMID [Concomitant]
     Active Substance: TORSEMIDE
     Indication: PRODUCT USED FOR UNKNOWN INDICATION
     Dosage: FREQUENCY TEXT-1-0-0
  15. VENETOCLAX. [Suspect]
     Active Substance: VENETOCLAX
     Route: 048
     Dates: start: 20180612, end: 20180618
  16. NOVALGIN [Concomitant]
     Indication: PRODUCT USED FOR UNKNOWN INDICATION
     Route: 042
  17. STEROFUNDIN [Concomitant]
     Active Substance: CALCIUM CHLORIDE\MAGNESIUM CHLORIDE\POTASSIUM CHLORIDE\SODIUM ACETATE\SODIUM CHLORIDE
     Indication: PRODUCT USED FOR UNKNOWN INDICATION
     Dosage: DOSE TEXT-42 ML/H
     Route: 042

REACTIONS (30)
  - Cerebral haemorrhage [Not Recovered/Not Resolved]
  - Subarachnoid haemorrhage [Unknown]
  - Hemiparesis [Unknown]
  - Neurologic neglect syndrome [Unknown]
  - Cerebrovascular accident [Unknown]
  - Infarction [Unknown]
  - Basal ganglia infarction [Unknown]
  - Oedema [Unknown]
  - Thrombectomy [Unknown]
  - Hypertension [Unknown]
  - Diarrhoea [Unknown]
  - Cerebral artery stent insertion [Unknown]
  - Dysarthria [Unknown]
  - Moyamoya disease [Unknown]
  - Arthralgia [Unknown]
  - Fall [Unknown]
  - Low density lipoprotein increased [Recovering/Resolving]
  - High density lipoprotein decreased [Unknown]
  - Hypercholesterolaemia [Unknown]
  - Scan abnormal [Unknown]
  - Cerebral infarction [Unknown]
  - Central nervous system haemorrhage [Unknown]
  - Pelvic pain [Unknown]
  - Blood cholesterol increased [Unknown]
  - Pneumonia aspiration [Unknown]
  - Cerebral artery occlusion [Unknown]
  - Gait disturbance [Unknown]
  - Blood thyroid stimulating hormone increased [Unknown]
  - Cerebral haemorrhage [Unknown]
  - Nausea [Unknown]

NARRATIVE: CASE EVENT DATE: 20180529
